FAERS Safety Report 18014217 (Version 1)
Quarter: 2020Q3

REPORT INFORMATION
  Report Type: Spontaneous
  Country: SE (occurrence: SE)
  Receive Date: 20200713
  Receipt Date: 20200713
  Transmission Date: 20201103
  Serious: Yes (Death, Other)
  Sender: FDA-Public Use
  Company Number: SE-009507513-2007SWE001948

PATIENT
  Age: 46 Year
  Sex: Female

DRUGS (1)
  1. KEYTRUDA [Suspect]
     Active Substance: PEMBROLIZUMAB
     Indication: LUNG CARCINOMA CELL TYPE UNSPECIFIED STAGE IV
     Dosage: UNK
     Dates: start: 202006

REACTIONS (4)
  - Malaise [Unknown]
  - Pneumonitis [Unknown]
  - Death [Fatal]
  - Adverse event [Unknown]

NARRATIVE: CASE EVENT DATE: 2020
